FAERS Safety Report 11138202 (Version 1)
Quarter: 2015Q2

REPORT INFORMATION
  Report Type: Spontaneous
  Country: US (occurrence: US)
  Receive Date: 20150526
  Receipt Date: 20150526
  Transmission Date: 20150821
  Serious: No
  Sender: FDA-Public Use
  Company Number: US-VIVUS-2015V1000180

PATIENT
  Age: 49 Year
  Sex: Male
  Weight: 85.35 kg

DRUGS (5)
  1. STENDRA [Suspect]
     Active Substance: AVANAFIL
     Route: 048
     Dates: start: 201504, end: 201504
  2. STENDRA [Suspect]
     Active Substance: AVANAFIL
     Indication: ERECTILE DYSFUNCTION
     Route: 048
     Dates: start: 201504, end: 201504
  3. STENDRA [Suspect]
     Active Substance: AVANAFIL
     Route: 048
     Dates: start: 201504, end: 201504
  4. DEXILANT [Concomitant]
     Active Substance: DEXLANSOPRAZOLE
     Indication: PRODUCT USED FOR UNKNOWN INDICATION
  5. FISH OIL [Concomitant]
     Active Substance: FISH OIL
     Indication: PRODUCT USED FOR UNKNOWN INDICATION

REACTIONS (1)
  - Drug ineffective [Unknown]

NARRATIVE: CASE EVENT DATE: 201504
